FAERS Safety Report 17603000 (Version 2)
Quarter: 2020Q4

REPORT INFORMATION
  Report Type: Spontaneous
  Country: BR (occurrence: BR)
  Receive Date: 20200331
  Receipt Date: 20201009
  Transmission Date: 20210113
  Serious: Yes (Other)
  Sender: FDA-Public Use
  Company Number: BR-ABBVIE-20P-020-3343256-00

PATIENT
  Age: 2 Year
  Sex: Female
  Weight: 12.6 kg

DRUGS (1)
  1. DEPAKENE [Suspect]
     Active Substance: VALPROIC ACID
     Indication: PRODUCT USED FOR UNKNOWN INDICATION
     Dosage: STARTED WHEN SHE WAS 5 MONTHS OLD
     Route: 048

REACTIONS (4)
  - Nausea [Unknown]
  - Seizure [Unknown]
  - Drug ineffective [Unknown]
  - Product use issue [Unknown]
